FAERS Safety Report 5887756-6 (Version None)
Quarter: 2008Q3

REPORT INFORMATION
  Report Type: 
  Country: None (occurrence: None)
  Receive Date: 20080918
  Receipt Date: 20080908
  Transmission Date: 20090109
  Serious: Yes (Hospitalization)
  Sender: FDA-Public Use
  Company Number: DE-ABBOTT-04P-062-0278495-03

PATIENT
  Sex: Female
  Weight: 61 kg

DRUGS (35)
  1. HUMIRA [Suspect]
     Indication: RHEUMATOID ARTHRITIS
     Dosage: 40 MG
     Route: 058
     Dates: start: 20031222, end: 20040911
  2. METHOTREXATE SODIUM [Concomitant]
     Indication: RHEUMATOID ARTHRITIS
     Route: 054
     Dates: start: 19920624, end: 20020204
  3. LEFLUNOMIDE [Concomitant]
     Indication: RHEUMATOID ARTHRITIS
     Route: 048
     Dates: start: 20000608
  4. CLOPREDNOL [Concomitant]
     Indication: RHEUMATOID ARTHRITIS
     Route: 048
     Dates: start: 19970502
  5. VALORON N [Concomitant]
     Indication: RHEUMATOID ARTHRITIS
     Dates: start: 20000608
  6. LANSOPRAZOLE [Concomitant]
     Indication: ULCER
     Route: 048
     Dates: start: 19980210
  7. AMITRIPTYLINE HYDROCHLORIDE [Concomitant]
     Indication: DEPRESSION
     Route: 048
     Dates: start: 19970624
  8. COLOXYL WITH DANTHRON [Concomitant]
     Indication: OSTEOPOROSIS
     Route: 048
     Dates: start: 19970624
  9. VASERETIC [Concomitant]
     Indication: HYPERTENSION
     Route: 048
  10. BISOPROLOL FUMARATE [Concomitant]
     Indication: HYPERTENSION
     Route: 048
  11. BISOPROLOL FUMARATE [Concomitant]
     Route: 048
  12. ACETYL SALICYLIC ACID COMPOUND TAB [Concomitant]
     Indication: CORONARY ARTERY DISEASE
     Route: 048
  13. ATORVASTATIN CALCIUM [Concomitant]
     Indication: HYPERLIPIDAEMIA
     Route: 048
  14. COMMERCIAL HUMIRA [Concomitant]
     Indication: RHEUMATOID ARTHRITIS
     Dates: start: 20031110
  15. TRAMADOL HCL [Concomitant]
     Indication: PAIN
  16. DICLOFENAC EPOLAMINUM [Concomitant]
     Indication: PAIN
  17. PANTOPRAZOLE SODIUM [Concomitant]
     Indication: PROPHYLAXIS AGAINST GASTROINTESTINAL ULCER
  18. BISOPROLOL FUMARATE [Concomitant]
     Indication: CORONARY ARTERY DISEASE
  19. PREDNISONE TAB [Concomitant]
     Indication: RHEUMATOID ARTHRITIS
  20. MOLSIDOMINE [Concomitant]
     Indication: CORONARY ARTERY DISEASE
  21. VASERETIC [Concomitant]
  22. LEVOTHYROXINE SODIUM [Concomitant]
     Indication: GOITRE
  23. LEFLUNOMIDE [Concomitant]
  24. CERTOPARIN SODIUM [Concomitant]
     Indication: THROMBOSIS PROPHYLAXIS
     Route: 058
  25. CLOPIDOGREL BISULFATE [Concomitant]
     Indication: CORONARY ARTERY DISEASE
  26. FENTANYL [Concomitant]
     Indication: PAIN
  27. CLOPIDOGREL [Concomitant]
     Indication: CORONARY ARTERY DISEASE
  28. COLECALCIFEROL [Concomitant]
     Indication: CONSTIPATION
  29. AMITRIPTYLINE HYDROCHLORIDE [Concomitant]
     Indication: PAIN
  30. CLOPREDNOL [Concomitant]
  31. NORVASO [Concomitant]
     Indication: HYPERTENSION
  32. ENALAPRIL [Concomitant]
     Indication: HYPERTENSION
  33. LACTULOSE [Concomitant]
     Indication: CONSTIPATION
  34. CLINDAMYCIN HCL [Concomitant]
     Indication: INFECTION
  35. CLINDAMYCIN HCL [Concomitant]

REACTIONS (1)
  - ARTHRITIS BACTERIAL [None]
